FAERS Safety Report 24280139 (Version 1)
Quarter: 2024Q3

REPORT INFORMATION
  Report Type: Spontaneous
  Country: FR (occurrence: FR)
  Receive Date: 20240904
  Receipt Date: 20240904
  Transmission Date: 20241017
  Serious: Yes (Life-Threatening, Other)
  Sender: SANDOZ
  Company Number: FR-SANDOZ-SDZ2024FR076693

PATIENT
  Age: 61 Year
  Sex: Male

DRUGS (2)
  1. CISPLATIN [Suspect]
     Active Substance: CISPLATIN
     Indication: Bronchial carcinoma
     Dosage: 4 UNK,CYCLIC
     Route: 065
  2. PEMETREXED [Suspect]
     Active Substance: PEMETREXED
     Indication: Bronchial carcinoma
     Dosage: 4 UNK,CYCLIC
     Route: 065

REACTIONS (1)
  - Acute kidney injury [Unknown]
